FAERS Safety Report 4591362-3 (Version None)
Quarter: 2005Q1

REPORT INFORMATION
  Report Type: 
  Country: None (occurrence: None)
  Receive Date: 20050223
  Receipt Date: 20050223
  Transmission Date: 20050727
  Serious: Yes (Death)
  Sender: FDA-Public Use
  Company Number: None

PATIENT
  Age: 43 Year
  Sex: Female
  Weight: 43.0917 kg

DRUGS (13)
  1. FLUDARABINE [Suspect]
     Dosage: 60MG Q.D. IV
     Route: 042
     Dates: start: 20040109, end: 20040113
  2. MELPHALAN [Suspect]
     Indication: STEM CELL TRANSPLANT
     Dosage: 250 MG Q.D. IV
     Route: 042
     Dates: start: 20040114
  3. CAMPATH [Suspect]
     Indication: STEM CELL TRANSPLANT
     Dosage: 20 MG Q.D.
     Dates: start: 20040109, end: 20040113
  4. PREDNISON [Concomitant]
  5. VORICONAZOLE [Concomitant]
  6. VALTREX [Concomitant]
  7. PREVACID [Concomitant]
  8. PENICILLIN [Concomitant]
  9. PAXIL [Concomitant]
  10. SINGULAIR [Concomitant]
  11. CELLCEPT [Concomitant]
  12. ADVIR [Concomitant]
  13. AZYTROMYCIN [Concomitant]

REACTIONS (4)
  - DYSPNOEA [None]
  - GENERAL PHYSICAL HEALTH DETERIORATION [None]
  - HYPOTENSION [None]
  - PNEUMONIA INFLUENZAL [None]
